FAERS Safety Report 8452099-3 (Version None)
Quarter: 2012Q2

REPORT INFORMATION
  Report Type: 
  Country: None (occurrence: None)
  Receive Date: 20120620
  Receipt Date: 20120615
  Transmission Date: 20120825
  Serious: Yes (Congenital Anomaly)
  Sender: FDA-Public Use
  Company Number: US-GLAXOSMITHKLINE-A0948275A

PATIENT
  Sex: Female

DRUGS (2)
  1. PAXIL [Suspect]
     Indication: ANXIETY
     Route: 064
  2. PAROXETINE [Suspect]
     Indication: ANXIETY
     Route: 064

REACTIONS (4)
  - CARDIAC DISORDER [None]
  - PERSISTENT FOETAL CIRCULATION [None]
  - HYPOPLASTIC LEFT HEART SYNDROME [None]
  - FOETAL EXPOSURE DURING PREGNANCY [None]
